FAERS Safety Report 5530221-6 (Version None)
Quarter: 2007Q4

REPORT INFORMATION
  Report Type: 
  Country: None (occurrence: None)
  Receive Date: 20071127
  Receipt Date: 20071112
  Transmission Date: 20080405
  Serious: Yes (Hospitalization)
  Sender: FDA-Public Use
  Company Number: JPI-P-002484

PATIENT
  Age: 1 Decade
  Sex: Male

DRUGS (3)
  1. XYREM [Suspect]
     Indication: NARCOLEPSY
     Dosage: ORAL
     Route: 048
  2. ANTI-HYPERTENSIVE AGENT (S)(ANTIHYPERTENSIVES) [Concomitant]
  3. AMPHETAMINE (AMFETAMINE SULFATE) [Concomitant]

REACTIONS (1)
  - MYOCARDIAL INFARCTION [None]
